FAERS Safety Report 25897909 (Version 1)
Quarter: 2025Q4

REPORT INFORMATION
  Report Type: Spontaneous
  Country: CN (occurrence: CN)
  Receive Date: 20251008
  Receipt Date: 20251008
  Transmission Date: 20260118
  Serious: Yes (Other)
  Sender: MERCK SHARP & DOHME LLC
  Company Number: CN-009507513-2335397

PATIENT
  Age: 67 Year
  Sex: Male

DRUGS (3)
  1. PEMBROLIZUMAB [Suspect]
     Active Substance: PEMBROLIZUMAB
     Indication: Malignant neoplasm of thorax
     Route: 065
     Dates: start: 202010, end: 202111
  2. PACLITAXEL [Suspect]
     Active Substance: PACLITAXEL
     Indication: Malignant neoplasm of thorax
     Route: 065
     Dates: start: 202010
  3. NEDAPLATIN [Suspect]
     Active Substance: NEDAPLATIN
     Indication: Malignant neoplasm of thorax
     Route: 065

REACTIONS (2)
  - Myelosuppression [Unknown]
  - Off label use [Unknown]

NARRATIVE: CASE EVENT DATE: 20200101
